FAERS Safety Report 10021524 (Version 2)
Quarter: 2014Q2

REPORT INFORMATION
  Report Type: Spontaneous
  Country: GR (occurrence: GR)
  Receive Date: 20140319
  Receipt Date: 20140402
  Transmission Date: 20141212
  Serious: Yes (Death)
  Sender: FDA-Public Use
  Company Number: GR-PFIZER INC-2014077295

PATIENT
  Age: 61 Year
  Sex: Female

DRUGS (2)
  1. PIPERACILLIN/TAZOBACTAM [Suspect]
     Indication: WOUND INFECTION STAPHYLOCOCCAL
     Dosage: 4.25 MG, 4X/DAY
  2. VANCOMYCIN HCL [Suspect]
     Indication: WOUND INFECTION STAPHYLOCOCCAL
     Dosage: 1 G, 2X/DAY

REACTIONS (2)
  - Drug ineffective [Fatal]
  - Septic shock [Fatal]
